FAERS Safety Report 12658610 (Version 1)
Quarter: 2016Q3

REPORT INFORMATION
  Report Type: Spontaneous
  Country: US (occurrence: None)
  Receive Date: 20160816
  Receipt Date: 20160816
  Transmission Date: 20161109
  Serious: Yes (Other)
  Sender: FDA-Public Use
  Company Number: None

PATIENT
  Age: 65 Year
  Sex: Female
  Weight: 77.11 kg

DRUGS (1)
  1. BELVIQ [Suspect]
     Active Substance: LORCASERIN HYDROCHLORIDE
     Indication: WEIGHT CONTROL
     Route: 048
     Dates: start: 20160602, end: 20160611

REACTIONS (6)
  - Fatigue [None]
  - Headache [None]
  - Pruritus [None]
  - Coordination abnormal [None]
  - Muscle twitching [None]
  - Drug ineffective [None]

NARRATIVE: CASE EVENT DATE: 20160602
